FAERS Safety Report 16881847 (Version 4)
Quarter: 2019Q4

REPORT INFORMATION
  Report Type: Report from Study
  Country: AR (occurrence: AR)
  Receive Date: 20191003
  Receipt Date: 20191031
  Transmission Date: 20200122
  Serious: Yes (Death, Hospitalization)
  Sender: FDA-Public Use
  Company Number: AR-ASTRAZENECA-2019SF27753

PATIENT
  Age: 73 Year
  Sex: Male

DRUGS (8)
  1. BENDAMUSTINE [Suspect]
     Active Substance: BENDAMUSTINE
     Indication: MANTLE CELL LYMPHOMA STAGE IV
     Dosage: 189.0MG/M2 ONCE/SINGLE ADMINISTRATION
     Route: 042
     Dates: start: 20190716, end: 20190716
  2. BENDAMUSTINE [Suspect]
     Active Substance: BENDAMUSTINE
     Indication: MANTLE CELL LYMPHOMA STAGE IV
     Dosage: 189.0MG/M2 ONCE/SINGLE ADMINISTRATION
     Route: 042
     Dates: start: 20190715, end: 20190715
  3. BENDAMUSTINE [Suspect]
     Active Substance: BENDAMUSTINE
     Indication: MANTLE CELL LYMPHOMA STAGE IV
     Dosage: END OF STUDY TREATMENT189.0MG/M2 ONCE/SINGLE ADMINISTRATION
     Route: 042
     Dates: start: 20190813, end: 20190813
  4. RITUXIMAB. [Suspect]
     Active Substance: RITUXIMAB
     Indication: MANTLE CELL LYMPHOMA STAGE IV
     Dosage: END OF STUDY TREATMENT787.5MG/M2 ONCE/SINGLE ADMINISTRATION
     Route: 042
     Dates: start: 20190812, end: 20190812
  5. BENDAMUSTINE [Suspect]
     Active Substance: BENDAMUSTINE
     Indication: MANTLE CELL LYMPHOMA STAGE IV
     Dosage: 189.0MG/M2 ONCE/SINGLE ADMINISTRATION
     Route: 042
     Dates: start: 20190812, end: 20190812
  6. ACALABRUTINIB. [Suspect]
     Active Substance: ACALABRUTINIB
     Indication: MANTLE CELL LYMPHOMA STAGE IV
     Route: 048
     Dates: start: 20190715, end: 20190811
  7. ACALABRUTINIB. [Suspect]
     Active Substance: ACALABRUTINIB
     Indication: MANTLE CELL LYMPHOMA STAGE IV
     Dosage: END OF STUDY TREATMENT
     Route: 048
     Dates: start: 20190812, end: 20190906
  8. RITUXIMAB. [Suspect]
     Active Substance: RITUXIMAB
     Indication: MANTLE CELL LYMPHOMA STAGE IV
     Dosage: 787.5MG/M2 ONCE/SINGLE ADMINISTRATION
     Route: 042
     Dates: start: 20190715, end: 20190715

REACTIONS (1)
  - Pneumonia cytomegaloviral [Fatal]

NARRATIVE: CASE EVENT DATE: 20190904
